FAERS Safety Report 9030655 (Version 2)
Quarter: 2013Q1

REPORT INFORMATION
  Report Type: Spontaneous
  Country: JP (occurrence: JP)
  Receive Date: 20130123
  Receipt Date: 20130205
  Transmission Date: 20140127
  Serious: Yes (Life-Threatening, Hospitalization)
  Sender: FDA-Public Use
  Company Number: JP-009507513-1301JPN010009

PATIENT
  Age: 70 Year
  Sex: Male

DRUGS (4)
  1. JANUVIA TABLETS 50MG [Suspect]
     Dosage: 50 MG, QD
     Route: 048
     Dates: start: 20110215
  2. ADALAT CR [Concomitant]
     Indication: HYPERTENSION
     Dosage: 40 MG, QD, DIVIDED DOSE FREQUENCY U
     Route: 065
  3. MICARDIS [Concomitant]
     Indication: HYPERTENSION
     Dosage: 40 MG, QD, DIVIDED DOSE FREQUENCY U
     Route: 065
  4. MAINTATE [Concomitant]
     Indication: HYPERTENSION
     Dosage: 2.5 MG, QD, DIVIDED DOSE FREQUENCY U
     Route: 065

REACTIONS (2)
  - Interstitial lung disease [Recovered/Resolved]
  - Sepsis [Unknown]
